FAERS Safety Report 16940303 (Version 2)
Quarter: 2025Q4

REPORT INFORMATION
  Report Type: Report from Study
  Country: US (occurrence: None)
  Receive Date: 20191021
  Receipt Date: 20251221
  Transmission Date: 20260118
  Serious: Yes (Other)
  Sender: UCB
  Company Number: US-UCBSA-2019043094

PATIENT
  Age: 32 Year
  Weight: 61 kg

DRUGS (28)
  1. CERTOLIZUMAB PEGOL [Suspect]
     Active Substance: CERTOLIZUMAB PEGOL
     Indication: Rheumatoid arthritis
     Dosage: 200 MILLIGRAM TWICE MONTHLY
  2. CERTOLIZUMAB PEGOL [Suspect]
     Active Substance: CERTOLIZUMAB PEGOL
     Dosage: 200 MILLIGRAM TWICE MONTHLY
  3. AMOXICILLIN [Concomitant]
     Active Substance: AMOXICILLIN
     Indication: Sinusitis
     Dosage: 500 MILLIGRAM, 2X/DAY (BID)
     Route: 061
  4. AMOXICILLIN [Concomitant]
     Active Substance: AMOXICILLIN
     Indication: Dental care
     Dosage: 825 MILLIGRAM, 2X/DAY (BID)
     Route: 061
  5. AMOXICILLIN [Concomitant]
     Active Substance: AMOXICILLIN
     Indication: Pain
  6. ASPIRIN [Concomitant]
     Active Substance: ASPIRIN
     Indication: Pregnancy
     Dosage: 81 MILLIGRAM, ONCE DAILY (QD)
     Route: 061
  7. CALCIUM\VITAMIN D [Concomitant]
     Active Substance: CALCIUM\VITAMIN D
     Indication: Product used for unknown indication
     Dosage: 1 DOSAGE FORM, ONCE DAILY (QD)
     Route: 061
  8. CEPHALEXIN [Concomitant]
     Active Substance: CEPHALEXIN
     Indication: Prophylaxis urinary tract infection
     Dosage: 500 MILLIGRAM AS NEEDED (PRN)
     Route: 061
  9. CLARITIN [Concomitant]
     Active Substance: LORATADINE
     Indication: Hypersensitivity
     Dosage: 1 DOSAGE FORM, ONCE DAILY (QD)
     Route: 061
  10. CORTISONE [Concomitant]
     Active Substance: CORTISONE
     Indication: Arthralgia
     Dosage: 1 DOSAGE FORM, ONCE DAILY (QD)
  11. CORTISONE [Concomitant]
     Active Substance: CORTISONE
     Indication: Rheumatoid arthritis
     Dosage: 1 DOSAGE FORM, ONCE DAILY (QD)
  12. DIETARY SUPPLEMENT [Concomitant]
     Active Substance: DIETARY SUPPLEMENT
     Indication: Product used for unknown indication
     Dosage: 400 MILLIGRAM, ONCE DAILY (QD)
     Route: 061
  13. DICLEGIS [Concomitant]
     Active Substance: DOXYLAMINE SUCCINATE\PYRIDOXINE HYDROCHLORIDE
     Indication: Nausea
     Dosage: 2 DOSAGE FORM, ONCE DAILY (QD)
     Route: 061
  14. FLUCELVAX FLUCELVAX [Concomitant]
     Indication: Product used for unknown indication
     Dosage: 1 DOSAGE FORM, ONCE DAILY (QD)
  15. FOLIC ACID [Concomitant]
     Active Substance: FOLIC ACID
     Indication: Rheumatoid arthritis
     Dosage: 3 GRAM, ONCE DAILY (QD)
     Route: 061
  16. FOLIC ACID [Concomitant]
     Active Substance: FOLIC ACID
     Indication: Pregnancy
  17. LEVOTHYROXINE SODIUM [Concomitant]
     Active Substance: LEVOTHYROXINE SODIUM
     Indication: Autoimmune thyroiditis
     Dosage: 137 MICROGRAM, ONCE DAILY (QD)
     Route: 061
  18. PLAQUENIL [Concomitant]
     Active Substance: HYDROXYCHLOROQUINE SULFATE
     Indication: Rheumatoid arthritis
     Dosage: 200 MILLIGRAM, ONCE DAILY (QD)
     Route: 061
  19. PREDNISONE [Concomitant]
     Active Substance: PREDNISONE
     Indication: Rheumatoid arthritis
     Dosage: 5 MILLIGRAM, ONCE DAILY (QD)
     Route: 061
  20. PREDNISONE [Concomitant]
     Active Substance: PREDNISONE
     Dosage: 7.5 MILLIGRAM, ONCE DAILY (QD)
     Route: 061
  21. PREDNISONE [Concomitant]
     Active Substance: PREDNISONE
     Dosage: 8.75 MILLIGRAM, ONCE DAILY (QD)
     Route: 061
  22. PRENATAL VITAMINS NOS [Concomitant]
     Indication: Product used for unknown indication
     Dosage: 1 DOSAGE FORM, ONCE DAILY (QD)
     Route: 061
  23. PROGESTERONE [Concomitant]
     Active Substance: PROGESTERONE
     Indication: Unevaluable event
     Dosage: 100 MILLIGRAM, ONCE DAILY (QD)
     Route: 061
  24. TUMS [Concomitant]
     Active Substance: CALCIUM CARBONATE
     Indication: Dyspepsia
     Dosage: 1 SHOT ONE DAY
  25. TUMS [Concomitant]
     Active Substance: CALCIUM CARBONATE
     Dosage: 2 DOSAGE FORM, AS NEEDED (PRN)
     Route: 061
  26. DEPO-MEDROL [Concomitant]
     Active Substance: METHYLPREDNISOLONE ACETATE
     Indication: Rheumatoid arthritis
     Dosage: 40 MILLIGRAM, ONCE DAILY (QD)
  27. DEPO-MEDROL [Concomitant]
     Active Substance: METHYLPREDNISOLONE ACETATE
     Dosage: 20 MILLIGRAM, ONCE DAILY (QD)
  28. DEPO-MEDROL [Concomitant]
     Active Substance: METHYLPREDNISOLONE ACETATE
     Dosage: 40 MILLIGRAM, ONCE DAILY (QD)

REACTIONS (7)
  - Urinary tract infection [Unknown]
  - Urosepsis [Unknown]
  - Sinusitis [Recovered/Resolved]
  - Nasopharyngitis [Unknown]
  - Injection site pain [Unknown]
  - Maternal exposure before pregnancy [Unknown]
  - Maternal exposure during pregnancy [Unknown]
